FAERS Safety Report 9285771 (Version 1)
Quarter: 2013Q2

REPORT INFORMATION
  Report Type: Spontaneous
  Country: US (occurrence: US)
  Receive Date: 20130513
  Receipt Date: 20130513
  Transmission Date: 20140414
  Serious: Yes (Other)
  Sender: FDA-Public Use
  Company Number: US-PFIZER INC-2013146870

PATIENT
  Sex: Female
  Weight: 48.98 kg

DRUGS (1)
  1. LYRICA [Suspect]
     Indication: POLYNEUROPATHY
     Dosage: 75 MG, 2X/DAY
     Dates: start: 20130504, end: 20130509

REACTIONS (11)
  - Intentional self-injury [Recovering/Resolving]
  - Confusional state [Recovering/Resolving]
  - Feeling abnormal [Recovering/Resolving]
  - Depression [Recovering/Resolving]
  - Dyskinesia [Recovering/Resolving]
  - Headache [Recovering/Resolving]
  - Vision blurred [Recovering/Resolving]
  - Communication disorder [Recovering/Resolving]
  - Trismus [Recovering/Resolving]
  - Speech disorder [Recovering/Resolving]
  - Nervousness [Recovering/Resolving]
